FAERS Safety Report 20008907 (Version 1)
Quarter: 2021Q4

REPORT INFORMATION
  Report Type: Spontaneous
  Country: DK (occurrence: DK)
  Receive Date: 20211028
  Receipt Date: 20211028
  Transmission Date: 20220303
  Serious: Yes (Hospitalization, Other)
  Sender: FDA-Public Use
  Company Number: DK-VALIDUS PHARMACEUTICALS LLC-DK-VDP-2021-012607

PATIENT
  Age: 77 Year
  Sex: Female

DRUGS (3)
  1. FUROSEMIDE [Suspect]
     Active Substance: FUROSEMIDE
     Indication: Diuretic therapy
     Dosage: 80 MG, QD
     Route: 048
     Dates: start: 20190827, end: 20190926
  2. DIGOXIN [Suspect]
     Active Substance: DIGOXIN
     Indication: Atrial fibrillation
     Dosage: 187.5 MILLIGRAM, QD
     Route: 048
     Dates: start: 20190829, end: 20190926
  3. LOSARTAN POTASSIUM [Suspect]
     Active Substance: LOSARTAN POTASSIUM
     Indication: Hypertension
     Dosage: 100 MG, QD
     Route: 048
     Dates: start: 2014, end: 20190926

REACTIONS (6)
  - General physical health deterioration [Unknown]
  - Blood creatine increased [Unknown]
  - Renal failure [Unknown]
  - Dehydration [Unknown]
  - Decreased appetite [Unknown]
  - Nausea [Unknown]

NARRATIVE: CASE EVENT DATE: 20190926
